FAERS Safety Report 19569308 (Version 1)
Quarter: 2021Q3

REPORT INFORMATION
  Report Type: Spontaneous
  Country: GB (occurrence: GB)
  Receive Date: 20210716
  Receipt Date: 20210716
  Transmission Date: 20211014
  Serious: Yes (Hospitalization, Other)
  Sender: FDA-Public Use
  Company Number: GB-VERTEX PHARMACEUTICALS-2021-010536

PATIENT
  Sex: Male

DRUGS (4)
  1. TOBI PODHALER [Concomitant]
     Active Substance: TOBRAMYCIN
  2. KALYDECO [Suspect]
     Active Substance: IVACAFTOR
     Indication: CYSTIC FIBROSIS
     Dosage: UNK
     Route: 048
     Dates: start: 2021
  3. PULMOZYME [Concomitant]
     Active Substance: DORNASE ALFA
  4. KAFTRIO [Suspect]
     Active Substance: ELEXACAFTOR\IVACAFTOR\TEZACAFTOR
     Indication: CYSTIC FIBROSIS
     Dosage: 2 TAB (75MG IVACAFTOR/ 50MG TEZACAFTOR/ 100MG ELEXACAFTOR) IN AM
     Route: 048
     Dates: start: 2021

REACTIONS (3)
  - Brain operation [Unknown]
  - Feeling abnormal [Unknown]
  - Pulmonary embolism [Unknown]

NARRATIVE: CASE EVENT DATE: 2021
